FAERS Safety Report 9778509 (Version 1)
Quarter: 2013Q4

REPORT INFORMATION
  Report Type: Spontaneous
  Country: US (occurrence: None)
  Receive Date: 20131219
  Receipt Date: 20131219
  Transmission Date: 20140711
  Serious: Yes (Hospitalization)
  Sender: FDA-Public Use
  Company Number: 2013AP010523

PATIENT
  Age: 68 Year
  Sex: Female

DRUGS (7)
  1. CIPROFLOXACIN [Suspect]
     Indication: URINARY TRACT INFECTION
     Route: 048
     Dates: start: 2008
  2. AUGMENTIN [Concomitant]
  3. ATORVASTATIN [Concomitant]
  4. DILTIAZEM [Concomitant]
  5. ESOMEPRAZOLE [Concomitant]
  6. LOSARTAN [Concomitant]
  7. COUMADIN [Concomitant]

REACTIONS (1)
  - Inappropriate antidiuretic hormone secretion [None]
